FAERS Safety Report 17580123 (Version 1)
Quarter: 2020Q1

REPORT INFORMATION
  Report Type: Spontaneous
  Country: US (occurrence: US)
  Receive Date: 20200325
  Receipt Date: 20200325
  Transmission Date: 20200409
  Serious: No
  Sender: FDA-Public Use
  Company Number: US-PFIZER INC-2020122119

PATIENT
  Sex: Male

DRUGS (1)
  1. ADVIL [Suspect]
     Active Substance: IBUPROFEN
     Dosage: UNK, 2X/DAY (TWO IN THE MORNING AND TWO AT NIGHT)

REACTIONS (2)
  - Arthritis [Unknown]
  - Peripheral swelling [Unknown]
